FAERS Safety Report 8494932-5 (Version None)
Quarter: 2012Q3

REPORT INFORMATION
  Report Type: 
  Country: None (occurrence: None)
  Receive Date: 20120709
  Receipt Date: 20120704
  Transmission Date: 20120928
  Serious: Yes (Hospitalization)
  Sender: FDA-Public Use
  Company Number: CH-PFIZER INC-2012160113

PATIENT
  Age: 68 Year
  Sex: Female

DRUGS (17)
  1. TAXOL [Suspect]
     Indication: BREAST CANCER IN SITU
     Dosage: UNK
     Route: 042
     Dates: start: 20120102, end: 20120301
  2. CYCLOPHOSPHAMIDE [Suspect]
     Indication: BREAST CANCER IN SITU
     Dosage: 900 MG, CYCLIC
     Route: 042
     Dates: start: 20120101, end: 20120301
  3. BETASERC [Concomitant]
     Dosage: 8 MG, 2X/DAY
     Dates: start: 20120601
  4. FRAGMIN [Concomitant]
     Indication: THROMBOSIS PROPHYLAXIS
     Dosage: UNK
     Dates: start: 20120515
  5. TAXOL [Suspect]
     Dosage: 120 MG, WEEKLY
     Route: 042
     Dates: start: 20120329, end: 20120510
  6. PHLEBOSTASIN [Concomitant]
     Dosage: 2 TABLETS, 1X/DAY
     Dates: start: 20120601
  7. PANTOPRAZOLE SODIUM [Concomitant]
     Dosage: 20 MG, 2X/DAY
     Dates: start: 20120516, end: 20120531
  8. HERCEPTIN [Suspect]
     Indication: BREAST CANCER IN SITU
     Dosage: UNK
     Route: 042
     Dates: start: 20120102, end: 20120301
  9. BETASERC [Concomitant]
     Dosage: 8 MG, 2X/DAY
     Dates: end: 20120531
  10. HERCEPTIN [Suspect]
     Dosage: 240 MG, 1X/DAY
     Route: 042
     Dates: start: 20120329, end: 20120329
  11. HERCEPTIN [Suspect]
     Dosage: 120 MG, WEEKLY
     Route: 042
     Dates: start: 20120405, end: 20120510
  12. NOOTROPIL [Concomitant]
     Dosage: 800 MG, 2X/DAY
     Dates: end: 20120531
  13. EPIRUBICIN HYDROCHLORIDE [Suspect]
     Indication: BREAST CANCER IN SITU
     Dosage: 135 MG, CYCLIC
     Route: 042
     Dates: start: 20120101, end: 20120301
  14. PHLEBOSTASIN [Concomitant]
     Dosage: 2 TABLETS, 1X/DAY
     Dates: end: 20120531
  15. PANTOPRAZOLE SODIUM [Concomitant]
     Dosage: 20 MG, 2X/DAY
     Dates: start: 20120601
  16. NOOTROPIL [Concomitant]
     Dosage: 800 MG, 2X/DAY
     Dates: start: 20120601
  17. AMLODIPIN MEPHA [Concomitant]
     Dosage: 5 MG, 1X/DAY

REACTIONS (5)
  - INTERSTITIAL LUNG DISEASE [None]
  - NEUTROPHIL COUNT DECREASED [None]
  - ANAEMIA [None]
  - LYMPHOPENIA [None]
  - LEUKOPENIA [None]
